FAERS Safety Report 4375919-0 (Version None)
Quarter: 2004Q2

REPORT INFORMATION
  Report Type: 
  Country: None (occurrence: None)
  Receive Date: 20040609
  Receipt Date: 20040609
  Transmission Date: 20050107
  Serious: Yes (Hospitalization)
  Sender: FDA-Public Use
  Company Number: None

PATIENT
  Sex: Male
  Weight: 60 kg

DRUGS (4)
  1. CYCLOPHOSPHAMIDE [Suspect]
     Indication: WEGENER'S GRANULOMATOSIS
     Dosage: 50 MG PO TID
     Route: 048
  2. PREDNISONE [Concomitant]
  3. BACTRIM DS [Concomitant]
  4. FOSAMAX [Concomitant]

REACTIONS (8)
  - DIARRHOEA [None]
  - HAEMATURIA [None]
  - HAEMORRHOIDAL HAEMORRHAGE [None]
  - MICTURITION URGENCY [None]
  - PAIN [None]
  - PLATELET COUNT DECREASED [None]
  - PROTEIN URINE PRESENT [None]
  - PYREXIA [None]
